FAERS Safety Report 4624977-4 (Version None)
Quarter: 2005Q2

REPORT INFORMATION
  Report Type: 
  Country: None (occurrence: None)
  Receive Date: 20050401
  Receipt Date: 20050322
  Transmission Date: 20051028
  Serious: Yes (Hospitalization)
  Sender: FDA-Public Use
  Company Number: JP-NOVOPROD-243189

PATIENT
  Age: 62 Year
  Sex: Female

DRUGS (6)
  1. NOVORAPID 30 MIX CHU PENFILL [Suspect]
     Indication: INSULIN-REQUIRING TYPE II DIABETES MELLITUS
     Dosage: 36 IU, QD
     Route: 058
     Dates: start: 20031213
  2. DIOVAN [Concomitant]
     Indication: HYPERTENSION
     Dosage: 80 MG, QD
     Route: 048
     Dates: start: 20020613
  3. LAXOBERON [Concomitant]
     Indication: CONSTIPATION
     Route: 048
     Dates: start: 20040811, end: 20040820
  4. CLARITHROMYCIN [Concomitant]
     Indication: NASOPHARYNGITIS
     Dosage: 400 MG, UNK
     Route: 048
     Dates: start: 20041104
  5. ONON [Concomitant]
     Indication: RHINITIS
     Dosage: 2 CAPS, QD
     Route: 048
     Dates: start: 20041104, end: 20041108
  6. SERRAPEPTASE [Concomitant]
     Indication: NASOPHARYNGITIS
     Dosage: 2 TAB, QD
     Route: 048
     Dates: start: 20041104, end: 20041108

REACTIONS (1)
  - LUMBAR SPINAL STENOSIS [None]
